FAERS Safety Report 11861561 (Version 1)
Quarter: 2015Q4

REPORT INFORMATION
  Report Type: Spontaneous
  Country: FR (occurrence: FR)
  Receive Date: 20151222
  Receipt Date: 20151222
  Transmission Date: 20160305
  Serious: Yes (Hospitalization)
  Sender: FDA-Public Use
  Company Number: FR-PFIZER INC-2015451576

PATIENT
  Age: 82 Year
  Sex: Female

DRUGS (6)
  1. AMIODARONE HYDROCHLORIDE. [Concomitant]
     Active Substance: AMIODARONE HYDROCHLORIDE
     Dosage: 200 MG
  2. SOLU-MEDROL [Suspect]
     Active Substance: METHYLPREDNISOLONE SODIUM SUCCINATE
     Indication: BRONCHITIS
     Dosage: UNK
     Dates: end: 20151124
  3. ATORVASTATIN [Concomitant]
     Active Substance: ATORVASTATIN
     Dosage: 20 MG, 1X/DAY
  4. NEBIVOLOL. [Concomitant]
     Active Substance: NEBIVOLOL
     Dosage: 5MG AT 0.25 DF (1.25MG) DAILY
  5. PREVISCAN [Suspect]
     Active Substance: FLUINDIONE
     Indication: THROMBOSIS
     Dosage: 20MG, 0.5 DF DAILY AND 0.25 DF EACH THIRD DAY
     Route: 048
     Dates: end: 20151124
  6. VALSARTAN. [Concomitant]
     Active Substance: VALSARTAN
     Dosage: 40 MG, 2X/DAY

REACTIONS (2)
  - Ulcer haemorrhage [Recovered/Resolved]
  - Microcytic anaemia [Recovered/Resolved]

NARRATIVE: CASE EVENT DATE: 20151124
